FAERS Safety Report 8885193 (Version 1)
Quarter: 2012Q4

REPORT INFORMATION
  Report Type: 
  Country: BR (occurrence: BR)
  Receive Date: 20121102
  Receipt Date: 20121102
  Transmission Date: 20130627
  Serious: Yes (Other)
  Sender: FDA-Public Use
  Company Number: BR-AMGEN-BRASP2012069669

PATIENT
  Age: 39 Year
  Sex: Female
  Weight: 86 kg

DRUGS (3)
  1. ENBREL [Suspect]
     Indication: RHEUMATOID ARTHRITIS
     Dosage: 50 mg, 1x/week
     Route: 058
     Dates: start: 201009, end: 201106
  2. PREDNISONE [Concomitant]
     Dosage: 5 mg, 1x/day
  3. LOSARTAN [Concomitant]
     Indication: HYPERTENSION
     Dosage: 100 mg, 1x/day

REACTIONS (1)
  - Intervertebral disc protrusion [Unknown]
